FAERS Safety Report 5601370-9 (Version None)
Quarter: 2008Q1

REPORT INFORMATION
  Report Type: 
  Country: None (occurrence: None)
  Receive Date: 20080109
  Receipt Date: 20080109
  Transmission Date: 20080703
  Serious: Yes (Hospitalization)
  Sender: FDA-Public Use
  Company Number: WAES 0709USA03401

PATIENT
  Age: 64 Year
  Sex: Female

DRUGS (4)
  1. DECADRON [Suspect]
     Indication: CEREBROVASCULAR ACCIDENT
     Dosage: PO ; 4 MG/Q6H/PO ; 2 MG/Q6H/PO ; 6 MG/Q6H/PO
     Route: 048
     Dates: end: 20030929
  2. DECADRON [Suspect]
     Indication: CEREBROVASCULAR ACCIDENT
     Dosage: PO ; 4 MG/Q6H/PO ; 2 MG/Q6H/PO ; 6 MG/Q6H/PO
     Route: 048
     Dates: start: 20030903, end: 20031002
  3. DECADRON [Suspect]
     Indication: CEREBROVASCULAR ACCIDENT
     Dosage: PO ; 4 MG/Q6H/PO ; 2 MG/Q6H/PO ; 6 MG/Q6H/PO
     Route: 048
     Dates: start: 20031003, end: 20031005
  4. DECADRON [Suspect]
     Indication: CEREBROVASCULAR ACCIDENT
     Dosage: PO ; 4 MG/Q6H/PO ; 2 MG/Q6H/PO ; 6 MG/Q6H/PO
     Route: 048
     Dates: start: 20030923

REACTIONS (1)
  - BLOOD GLUCOSE INCREASED [None]
